FAERS Safety Report 5082242-8 (Version None)
Quarter: 2006Q3

REPORT INFORMATION
  Report Type: 
  Country: None (occurrence: None)
  Receive Date: 20060817
  Receipt Date: 20060804
  Transmission Date: 20061208
  Serious: Yes (Hospitalization)
  Sender: FDA-Public Use
  Company Number: US-KINGPHARMUSA00001-K200601011

PATIENT
  Age: 86 Year
  Sex: Male

DRUGS (10)
  1. ALTACE [Suspect]
     Indication: ESSENTIAL HYPERTENSION
     Dosage: UNK, QD
     Route: 048
     Dates: end: 20060116
  2. LASILIX [Concomitant]
     Dosage: UNK, UNK
     Route: 048
  3. SINTROM [Concomitant]
     Indication: PROPHYLAXIS
     Dosage: UNK, UNK
     Route: 048
     Dates: end: 20060110
  4. OMEPRAZOLE [Concomitant]
     Dosage: UNK, UNK
     Route: 048
  5. LOXEN [Concomitant]
     Indication: HYPERTENSION
     Dosage: UNK, UNK
     Route: 048
  6. VASTEN [Concomitant]
     Indication: HYPERCHOLESTEROLAEMIA
     Dosage: UNK, UNK
     Route: 048
  7. KAYEXALATE [Concomitant]
  8. FORADIL [Concomitant]
  9. NEORECORMON ^BOEHRINGER MANNHEIM^ [Concomitant]
  10. DI-ANTALVIC [Concomitant]
     Dosage: UNK, UNK

REACTIONS (4)
  - ABDOMINAL HAEMATOMA [None]
  - CARDIAC FAILURE [None]
  - COUGH [None]
  - SUPERINFECTION LUNG [None]
